FAERS Safety Report 24849434 (Version 1)
Quarter: 2025Q1

REPORT INFORMATION
  Report Type: Spontaneous
  Country: GB (occurrence: GB)
  Receive Date: 20250116
  Receipt Date: 20250116
  Transmission Date: 20250409
  Serious: Yes (Other)
  Sender: MYLAN
  Company Number: GB-MHRA-TPP356976C2786734YC1736522507050

PATIENT
  Age: 49 Year
  Sex: Female

DRUGS (3)
  1. SERTRALINE [Suspect]
     Active Substance: SERTRALINE HYDROCHLORIDE
     Indication: Ill-defined disorder
     Route: 065
     Dates: start: 20240625, end: 20250110
  2. BUDESONIDE [Concomitant]
     Active Substance: BUDESONIDE
     Indication: Ill-defined disorder
     Dosage: 1 DOSAGE FORM, TID (8 WEEKS COURSE - TAKE ONE THREE TIMES A DAY FO)
     Route: 065
     Dates: start: 20241101, end: 20241227
  3. LANSOPRAZOLE [Concomitant]
     Active Substance: LANSOPRAZOLE
     Indication: Ill-defined disorder
     Dosage: 1 DOSAGE FORM, QD (1 EVERY DAY)
     Route: 065
     Dates: start: 20181016

REACTIONS (3)
  - Colitis [Recovered/Resolved]
  - Rectal haemorrhage [Unknown]
  - Diarrhoea [Unknown]

NARRATIVE: CASE EVENT DATE: 20240902
